FAERS Safety Report 19937570 (Version 5)
Quarter: 2022Q4

REPORT INFORMATION
  Report Type: Report from Study
  Country: BR (occurrence: BR)
  Receive Date: 20211011
  Receipt Date: 20221008
  Transmission Date: 20230113
  Serious: Yes (Disabling, Other)
  Sender: FDA-Public Use
  Company Number: BR-ABBVIE-21K-020-4111286-00

PATIENT
  Age: 69 Year
  Sex: Female
  Weight: 62 kg

DRUGS (8)
  1. RINVOQ [Suspect]
     Active Substance: UPADACITINIB
     Indication: Rheumatoid arthritis
     Route: 048
     Dates: start: 20210728
  2. RINVOQ [Suspect]
     Active Substance: UPADACITINIB
     Indication: Rheumatoid arthritis
     Dosage: 1 TABLET A DAY
     Route: 048
     Dates: start: 2021, end: 2021
  3. RINVOQ [Suspect]
     Active Substance: UPADACITINIB
     Indication: Rheumatoid arthritis
     Route: 048
  4. XARELTO [Concomitant]
     Active Substance: RIVAROXABAN
     Indication: Anticoagulant therapy
  5. PREGABALIN [Concomitant]
     Active Substance: PREGABALIN
     Indication: Pain
  6. DULOXETINE HYDROCHLORIDE [Concomitant]
     Active Substance: DULOXETINE HYDROCHLORIDE
     Indication: Pain
  7. PREDNISONE [Concomitant]
     Active Substance: PREDNISONE
     Indication: Pain
  8. INFLUENZA VIRUS VACCINE [Suspect]
     Active Substance: INFLUENZA VIRUS VACCINE
     Indication: Product used for unknown indication
     Route: 065

REACTIONS (15)
  - Wheelchair user [Unknown]
  - Scoliosis [Unknown]
  - Fall [Unknown]
  - Therapeutic response unexpected [Unknown]
  - Pulmonary pain [Recovering/Resolving]
  - Pain [Unknown]
  - Osteoarthritis [Unknown]
  - Arthralgia [Not Recovered/Not Resolved]
  - Gait disturbance [Not Recovered/Not Resolved]
  - COVID-19 [Recovering/Resolving]
  - Arthralgia [Not Recovered/Not Resolved]
  - Groin pain [Recovering/Resolving]
  - Influenza [Unknown]
  - Femur fracture [Unknown]
  - Pain in extremity [Not Recovered/Not Resolved]

NARRATIVE: CASE EVENT DATE: 20220601
